FAERS Safety Report 17668065 (Version 2)
Quarter: 2020Q2

REPORT INFORMATION
  Report Type: Spontaneous
  Country: US (occurrence: US)
  Receive Date: 20200414
  Receipt Date: 20200420
  Transmission Date: 20200713
  Serious: No
  Sender: FDA-Public Use
  Company Number: US-AMGEN-USASP2020059678

PATIENT
  Age: 27 Year
  Sex: Male

DRUGS (4)
  1. ETANERCEPT [Suspect]
     Active Substance: ETANERCEPT
     Indication: ANKYLOSING SPONDYLITIS
     Dosage: UNK
     Route: 065
  2. ETANERCEPT [Suspect]
     Active Substance: ETANERCEPT
     Indication: COLITIS
     Dosage: UNK UNK, UNK
     Route: 065
  3. MESALAMINE. [Suspect]
     Active Substance: MESALAMINE
     Indication: ANKYLOSING SPONDYLITIS
     Dosage: UNK UNK, UNK
     Route: 065
  4. MESALAMINE. [Suspect]
     Active Substance: MESALAMINE
     Indication: COLITIS
     Dosage: UNK
     Route: 065
     Dates: start: 200507

REACTIONS (1)
  - Therapeutic product effect incomplete [Unknown]
